FAERS Safety Report 6842288-3 (Version None)
Quarter: 2010Q3

REPORT INFORMATION
  Report Type: 
  Country: None (occurrence: None)
  Receive Date: 20100714
  Receipt Date: 20070725
  Transmission Date: 20110219
  Serious: No
  Sender: FDA-Public Use
  Company Number: US-PFIZER INC-2007062665

PATIENT
  Sex: Female
  Weight: 71.8 kg

DRUGS (4)
  1. CHANTIX [Suspect]
     Indication: SMOKING CESSATION THERAPY
     Dates: start: 20070716
  2. LUNESTA [Concomitant]
     Indication: SLEEP DISORDER
  3. ESTRADIOL [Concomitant]
     Indication: MENOPAUSAL SYMPTOMS
  4. PROGESTERONE [Concomitant]
     Indication: MENOPAUSAL SYMPTOMS

REACTIONS (3)
  - ABDOMINAL DISCOMFORT [None]
  - NAUSEA [None]
  - SLEEP DISORDER [None]
